FAERS Safety Report 19084895 (Version 7)
Quarter: 2024Q1

REPORT INFORMATION
  Report Type: Spontaneous
  Country: US (occurrence: US)
  Receive Date: 20210401
  Receipt Date: 20240103
  Transmission Date: 20240410
  Serious: Yes (Other)
  Sender: FDA-Public Use
  Company Number: US-PFIZER INC-2021254322

PATIENT
  Age: 79 Year
  Sex: Female

DRUGS (3)
  1. IBRANCE [Suspect]
     Active Substance: PALBOCICLIB
     Indication: Breast cancer metastatic
     Dosage: 1 TABLET (75 MG) DAILY X 21 DAYS, THEN OFF X 7 DAYS AND REPEAT CYCLE
     Route: 048
     Dates: start: 20201117
  2. IBRANCE [Suspect]
     Active Substance: PALBOCICLIB
     Dosage: 100 MG, CYCLIC ( TAKE 1 TABLET DAILY FOR 21 DAYS, THEN OFF FOR 7 DAYS, THEN REPEAT CYCLE.)
  3. IBRANCE [Suspect]
     Active Substance: PALBOCICLIB
     Dosage: 1 TABLET (75 MG) DAILY X 21 DAYS, THEN OFF X 7 DAYS AND REPEAT CYCLE
     Route: 048
     Dates: start: 20231205

REACTIONS (5)
  - Second primary malignancy [Unknown]
  - Malignant lymphoid neoplasm [Unknown]
  - Neutropenia [Unknown]
  - Vomiting [Unknown]
  - Nausea [Unknown]
